FAERS Safety Report 4307522-2 (Version None)
Quarter: 2004Q1

REPORT INFORMATION
  Report Type: 
  Country: None (occurrence: None)
  Receive Date: 20040226
  Receipt Date: 20040210
  Transmission Date: 20041129
  Serious: Yes (Hospitalization)
  Sender: FDA-Public Use
  Company Number: 30018549-RO4A132-1

PATIENT
  Age: 50 Year
  Sex: Female

DRUGS (2)
  1. DIANEAL PD-2 W/ DEXTROSE 1.5% [Suspect]
     Indication: PERITONEAL DIALYSIS
     Dosage: DIANEAL PD-2, 1.5% SOLUTION, ROUTE INTRAPERITONEAL.
     Route: 033
     Dates: start: 20010101
  2. DIANEAL PD-2, 4.25% TWIN-BAG, EVERY THIRD DAY [Concomitant]

REACTIONS (2)
  - ABDOMINAL PAIN [None]
  - NAUSEA [None]
